FAERS Safety Report 5910295-0 (Version None)
Quarter: 2008Q4

REPORT INFORMATION
  Report Type: 
  Country: None (occurrence: None)
  Receive Date: 20081007
  Receipt Date: 20080924
  Transmission Date: 20090506
  Serious: Yes (Hospitalization)
  Sender: FDA-Public Use
  Company Number: TR-ELI_LILLY_AND_COMPANY-TR200809005747

PATIENT
  Sex: Male

DRUGS (2)
  1. HUMALOG [Suspect]
     Indication: DIABETES MELLITUS
     Dosage: 10 U, 3/D
     Route: 058
     Dates: start: 20080808
  2. LANTUS [Concomitant]
     Indication: DIABETES MELLITUS
     Dosage: 20 U, EACH EVENING
     Route: 058
     Dates: start: 20080808

REACTIONS (2)
  - BLOOD GLUCOSE INCREASED [None]
  - NEUROPATHY PERIPHERAL [None]
